FAERS Safety Report 17574679 (Version 1)
Quarter: 2020Q1

REPORT INFORMATION
  Report Type: Spontaneous
  Country: CN (occurrence: CN)
  Receive Date: 20200324
  Receipt Date: 20200324
  Transmission Date: 20200409
  Serious: Yes (Other)
  Sender: FDA-Public Use
  Company Number: CN-ROCHE-2569322

PATIENT
  Sex: Male

DRUGS (10)
  1. IRINOTECAN [Concomitant]
     Active Substance: IRINOTECAN
     Route: 041
  2. BEVACIZUMAB. [Suspect]
     Active Substance: BEVACIZUMAB
     Indication: INTESTINAL METASTASIS
     Route: 041
     Dates: start: 201908, end: 201911
  3. BEVACIZUMAB. [Suspect]
     Active Substance: BEVACIZUMAB
     Route: 041
     Dates: start: 201908, end: 201911
  4. CALCIUM LEVOFOLINATE [Concomitant]
     Active Substance: LEVOLEUCOVORIN CALCIUM
     Route: 041
  5. 5-FU [FLUOROURACIL] [Concomitant]
     Active Substance: FLUOROURACIL
     Route: 041
  6. IRINOTECAN [Concomitant]
     Active Substance: IRINOTECAN
     Indication: INTESTINAL METASTASIS
     Route: 041
  7. 5-FU [FLUOROURACIL] [Concomitant]
     Active Substance: FLUOROURACIL
     Route: 041
  8. 5-FU [FLUOROURACIL] [Concomitant]
     Active Substance: FLUOROURACIL
     Route: 065
  9. CALCIUM LEVOFOLINATE [Concomitant]
     Active Substance: LEVOLEUCOVORIN CALCIUM
     Indication: INTESTINAL METASTASIS
     Route: 041
  10. 5-FU [FLUOROURACIL] [Concomitant]
     Active Substance: FLUOROURACIL
     Indication: INTESTINAL METASTASIS
     Route: 041

REACTIONS (8)
  - Atelectasis [Recovered/Resolved]
  - Hepatic cancer metastatic [Unknown]
  - Carbohydrate antigen 72-4 increased [Unknown]
  - Carbohydrate antigen 19-9 increased [Unknown]
  - Abdominal pain upper [Unknown]
  - Pleural effusion [Unknown]
  - Adrenal gland cancer metastatic [Unknown]
  - Carcinoembryonic antigen increased [Recovered/Resolved]

NARRATIVE: CASE EVENT DATE: 202002
